FAERS Safety Report 15195877 (Version 2)
Quarter: 2018Q4

REPORT INFORMATION
  Report Type: Spontaneous
  Country: US (occurrence: US)
  Receive Date: 20180725
  Receipt Date: 20181105
  Transmission Date: 20190204
  Serious: No
  Sender: FDA-Public Use
  Company Number: US-PFIZER INC-2018297831

PATIENT
  Age: 68 Year
  Sex: Female
  Weight: 61 kg

DRUGS (4)
  1. LYRICA [Suspect]
     Active Substance: PREGABALIN
     Indication: NEURALGIA
     Dosage: UNK (75 (UNIT NOT REPORTED) COUPLE OF TIMES A DAY)
  2. LYRICA [Suspect]
     Active Substance: PREGABALIN
     Indication: FACIAL PAIN
     Dosage: UNK, 3X/DAY (150 (UNIT NOT REPORTED) THREE TIMES A DAY)
  3. LYRICA [Suspect]
     Active Substance: PREGABALIN
     Dosage: 150 MG, AS NEEDED (1 CAPSULE BY MOUTH FOUR TIMES DAILY, AS NEEDED DISPENSE: 270 CAPSULE, DAYS^ SUPP)
     Route: 048
  4. LYRICA [Suspect]
     Active Substance: PREGABALIN
     Dosage: 600 MG, DAILY

REACTIONS (7)
  - Drug ineffective [Unknown]
  - Intentional product misuse [Unknown]
  - Malaise [Unknown]
  - Drug level increased [Unknown]
  - Feeling abnormal [Unknown]
  - Speech disorder [Unknown]
  - Product use issue [Unknown]

NARRATIVE: CASE EVENT DATE: 2018
